FAERS Safety Report 8898681 (Version 1)
Quarter: 2012Q4

REPORT INFORMATION
  Report Type: 
  Country: BR (occurrence: BR)
  Receive Date: 20121108
  Receipt Date: 20121108
  Transmission Date: 20130627
  Serious: Yes (Hospitalization, Other)
  Sender: FDA-Public Use
  Company Number: BR-AMGEN-BRASP2012030799

PATIENT
  Age: 46 Year
  Sex: Female
  Weight: 81 kg

DRUGS (3)
  1. ENBREL [Suspect]
     Indication: RHEUMATOID ARTHRITIS
     Dosage: 50 mg, weekly
     Route: 058
     Dates: start: 201111, end: 201207
  2. METHOTREXATE [Concomitant]
     Dosage: 2.5 mg, weekly
  3. PREDNISONE [Concomitant]
     Dosage: 5 mg, 1x/day

REACTIONS (9)
  - Patient-device incompatibility [Unknown]
  - Uterine disorder [Unknown]
  - Feeling abnormal [Not Recovered/Not Resolved]
  - Calculus urinary [Unknown]
  - Blood disorder [Unknown]
  - Walking disability [Unknown]
  - Arthralgia [Unknown]
  - Injection site pain [Unknown]
  - Injection site haematoma [Unknown]
